FAERS Safety Report 10981724 (Version 2)
Quarter: 2015Q2

REPORT INFORMATION
  Report Type: Spontaneous
  Country: US (occurrence: US)
  Receive Date: 20150402
  Receipt Date: 20150525
  Transmission Date: 20150821
  Serious: No
  Sender: FDA-Public Use
  Company Number: US-JNJFOC-20140406888

PATIENT
  Age: 76 Year
  Sex: Male
  Weight: 83.92 kg

DRUGS (2)
  1. IMODIUM A-D [Suspect]
     Active Substance: LOPERAMIDE HYDROCHLORIDE
     Route: 048
  2. IMODIUM A-D [Suspect]
     Active Substance: LOPERAMIDE HYDROCHLORIDE
     Indication: DIARRHOEA
     Dosage: 30ML WITH FIRST LOOSE STOOL AND 15 ML WITH EACH SUBSEQUENT LOOSE STOOL
     Route: 048
     Dates: start: 20140403, end: 20140407

REACTIONS (1)
  - Incorrect dose administered [Unknown]
